FAERS Safety Report 15346908 (Version 2)
Quarter: 2018Q3

REPORT INFORMATION
  Report Type: Spontaneous
  Country: UA (occurrence: UA)
  Receive Date: 20180904
  Receipt Date: 20180905
  Transmission Date: 20181010
  Serious: Yes (Death, Other)
  Sender: FDA-Public Use
  Company Number: UA-ROCHE-2177349

PATIENT
  Age: 54 Year
  Sex: Male

DRUGS (3)
  1. TECENTRIQ [Suspect]
     Active Substance: ATEZOLIZUMAB
     Indication: NASOPHARYNGEAL CANCER
     Dosage: THE LAST INFUSION OF TECENTRIQ WAS MADE ON 06/AUG/2018.
     Route: 042
  2. TECENTRIQ [Suspect]
     Active Substance: ATEZOLIZUMAB
     Indication: METASTASES TO LUNG
  3. TECENTRIQ [Suspect]
     Active Substance: ATEZOLIZUMAB
     Indication: METASTASES TO CENTRAL NERVOUS SYSTEM

REACTIONS (4)
  - Multiple organ dysfunction syndrome [Fatal]
  - Cerebrovascular accident [Unknown]
  - Body temperature increased [Unknown]
  - Cardiopulmonary failure [Fatal]

NARRATIVE: CASE EVENT DATE: 20180813
